FAERS Safety Report 17635275 (Version 3)
Quarter: 2020Q2

REPORT INFORMATION
  Report Type: Report from Study
  Country: CA (occurrence: CA)
  Receive Date: 20200406
  Receipt Date: 20200417
  Transmission Date: 20200713
  Serious: Yes (Hospitalization, Other)
  Sender: FDA-Public Use
  Company Number: NVSC2020CA093036

PATIENT
  Age: 24 Year
  Sex: Male

DRUGS (5)
  1. DICLOFENAC [Suspect]
     Active Substance: DICLOFENAC
     Indication: PRODUCT USED FOR UNKNOWN INDICATION
     Dosage: UNK
     Route: 065
  2. PREDNISONE. [Concomitant]
     Active Substance: PREDNISONE
     Indication: IRITIS
     Dosage: UNK, Q2H
     Route: 065
  3. BETADERM [Concomitant]
     Active Substance: BETAMETHASONE VALERATE
     Indication: PRODUCT USED FOR UNKNOWN INDICATION
     Route: 048
  4. SIMPONI [Concomitant]
     Active Substance: GOLIMUMAB
     Indication: PRODUCT USED FOR UNKNOWN INDICATION
     Dosage: UNK
     Route: 058
  5. NAPROXEN. [Concomitant]
     Active Substance: NAPROXEN
     Indication: BACK PAIN
     Dosage: 500 MG, BID
     Route: 048

REACTIONS (41)
  - Spinal pain [Unknown]
  - Hypersomnia [Unknown]
  - Arthritis [Unknown]
  - Vomiting [Recovered/Resolved]
  - Gastrointestinal haemorrhage [Not Recovered/Not Resolved]
  - Haematemesis [Recovered/Resolved]
  - Bowel movement irregularity [Unknown]
  - Back pain [Not Recovered/Not Resolved]
  - Gait disturbance [Unknown]
  - Musculoskeletal stiffness [Unknown]
  - Flank pain [Unknown]
  - Intervertebral disc protrusion [Unknown]
  - Depression [Unknown]
  - Melaena [Recovered/Resolved]
  - Sacroiliitis [Unknown]
  - Weight decreased [Unknown]
  - Osteosclerosis [Unknown]
  - Sleep disorder [Unknown]
  - Diarrhoea haemorrhagic [Recovered/Resolved]
  - Chest discomfort [Unknown]
  - Skin lesion [Unknown]
  - Arthralgia [Unknown]
  - Dyspnoea [Unknown]
  - Diarrhoea [Recovered/Resolved]
  - Constipation [Recovered/Resolved]
  - Haemorrhoids [Unknown]
  - Osteomyelitis [Unknown]
  - Bone marrow oedema [Unknown]
  - Salivary gland calculus [Unknown]
  - Joint effusion [Recovered/Resolved]
  - Joint effusion [Not Recovered/Not Resolved]
  - Musculoskeletal chest pain [Unknown]
  - Decreased activity [Unknown]
  - Therapeutic response decreased [Unknown]
  - Culture urine positive [Recovered/Resolved]
  - Ankylosing spondylitis [Unknown]
  - HLA-B*27 positive [Unknown]
  - Upper respiratory tract infection [Unknown]
  - Joint swelling [Recovered/Resolved]
  - Neck pain [Unknown]
  - Musculoskeletal pain [Unknown]

NARRATIVE: CASE EVENT DATE: 20200409
